FAERS Safety Report 10228440 (Version 2)
Quarter: 2014Q3

REPORT INFORMATION
  Report Type: Spontaneous
  Country: US (occurrence: US)
  Receive Date: 20140610
  Receipt Date: 20140903
  Transmission Date: 20150326
  Serious: Yes (Other)
  Sender: FDA-Public Use
  Company Number: US-BAYER-2014-084548

PATIENT
  Age: 35 Year
  Sex: Female
  Weight: 46.71 kg

DRUGS (4)
  1. OMNICEF [Concomitant]
     Active Substance: CEFDINIR
     Dosage: 300 MG, UNK
     Dates: start: 20050720
  2. YAZ [Suspect]
     Active Substance: DROSPIRENONE\ETHINYL ESTRADIOL
     Indication: CONTRACEPTION
     Dosage: UNK UNK, QD
     Dates: start: 20050415, end: 200510
  3. FLUCONAZOLE. [Concomitant]
     Active Substance: FLUCONAZOLE
     Dosage: 150 MG, UNK
     Dates: start: 20050720
  4. YAZ [Suspect]
     Active Substance: DROSPIRENONE\ETHINYL ESTRADIOL
     Indication: CONTRACEPTION
     Dosage: UNK
     Dates: start: 20051015

REACTIONS (6)
  - Emotional distress [None]
  - Deep vein thrombosis [None]
  - General physical health deterioration [None]
  - Pain [None]
  - Injury [None]
  - Anxiety [None]

NARRATIVE: CASE EVENT DATE: 2005
